FAERS Safety Report 7063186-9 (Version None)
Quarter: 2010Q4

REPORT INFORMATION
  Report Type: 
  Country: None (occurrence: None)
  Receive Date: 20101026
  Receipt Date: 20100506
  Transmission Date: 20110411
  Serious: Yes (Other)
  Sender: FDA-Public Use
  Company Number: US-PFIZER INC-2010057996

PATIENT
  Age: 78 Year
  Sex: Female

DRUGS (2)
  1. LIPITOR [Suspect]
     Dosage: UNK
     Dates: start: 19950101
  2. ACETYLSALICYLIC ACID [Concomitant]
     Dosage: ONE A DAY

REACTIONS (2)
  - BLOOD TRIGLYCERIDES INCREASED [None]
  - MEMORY IMPAIRMENT [None]
